FAERS Safety Report 20635348 (Version 1)
Quarter: 2022Q1

REPORT INFORMATION
  Report Type: Other
  Country: GB (occurrence: None)
  Receive Date: 20220325
  Receipt Date: 20220325
  Transmission Date: 20220423
  Serious: Yes (Life-Threatening)
  Sender: FDA-Public Use
  Company Number: GB-ROCHE-3003948

PATIENT
  Sex: Male

DRUGS (1)
  1. TOCILIZUMAB [Suspect]
     Active Substance: TOCILIZUMAB
     Indication: Rheumatoid arthritis
     Route: 058
     Dates: start: 2016

REACTIONS (3)
  - Treatment failure [Unknown]
  - Therapeutic product effect decreased [Unknown]
  - Synovitis [Unknown]

NARRATIVE: CASE EVENT DATE: 20220107
